FAERS Safety Report 9031310 (Version 2)
Quarter: 2013Q1

REPORT INFORMATION
  Report Type: Spontaneous
  Country: FR (occurrence: FR)
  Receive Date: 20130124
  Receipt Date: 20130131
  Transmission Date: 20140127
  Serious: Yes (Death, Life-Threatening, Hospitalization, Other)
  Sender: FDA-Public Use
  Company Number: FR-PFIZER INC-2013028206

PATIENT
  Age: 77 Year
  Sex: Male

DRUGS (5)
  1. AMIODARONE HCL [Suspect]
     Indication: PRODUCT USED FOR UNKNOWN INDICATION
     Dosage: 200 MG, DAILY
     Route: 048
     Dates: end: 20121206
  2. KARDEGIC [Concomitant]
     Dosage: UNK
  3. TAMSULOSIN [Concomitant]
     Dosage: UNK
  4. FUROSEMIDE [Concomitant]
     Dosage: UNK
  5. URSODEOXYCHOLIC ACID [Concomitant]
     Dosage: UNK

REACTIONS (15)
  - Interstitial lung disease [Fatal]
  - Bone marrow granuloma [Recovering/Resolving]
  - Drug-induced liver injury [Not Recovered/Not Resolved]
  - Pancytopenia [Recovering/Resolving]
  - Ascites [Unknown]
  - Oedema [Unknown]
  - Pneumonia klebsiella [Unknown]
  - Septic shock [Unknown]
  - Varices oesophageal [Unknown]
  - Splenomegaly [Unknown]
  - Weight decreased [Unknown]
  - Renal failure [Unknown]
  - Circulatory collapse [Unknown]
  - Nervous system disorder [Unknown]
  - Respiratory failure [Unknown]
